FAERS Safety Report 7658340-9 (Version None)
Quarter: 2011Q3

REPORT INFORMATION
  Report Type: 
  Country: None (occurrence: None)
  Receive Date: 20110802
  Receipt Date: 20110718
  Transmission Date: 20111222
  Serious: Yes (Other)
  Sender: FDA-Public Use
  Company Number: 2011MA001954

PATIENT
  Age: 57 Year
  Sex: Male
  Weight: 88.4514 kg

DRUGS (19)
  1. METOCLOPRAMIDE [Suspect]
     Indication: DIARRHOEA
     Dosage: 20 MG; QID; PO
     Route: 048
  2. METOCLOPRAMIDE [Suspect]
     Indication: CONSTIPATION
     Dosage: 20 MG; QID; PO
     Route: 048
  3. METOCLOPRAMIDE [Suspect]
     Indication: NAUSEA
     Dosage: 20 MG; QID; PO
     Route: 048
  4. MIRAPEX [Concomitant]
  5. PREVACID [Concomitant]
  6. MIRALAX [Concomitant]
  7. ZETIA [Concomitant]
  8. NORVASC [Concomitant]
  9. PROPULSID [Concomitant]
  10. COUMADIN [Concomitant]
  11. DARVOCET [Concomitant]
  12. M.V.I. [Concomitant]
  13. MECLIZINE [Concomitant]
  14. ATENOLOL [Concomitant]
  15. ZELNORM [Concomitant]
  16. FLORINEF [Concomitant]
  17. ATIVAN [Concomitant]
  18. TEMAZEPAM [Concomitant]
  19. NEXIUM [Concomitant]

REACTIONS (19)
  - EMOTIONAL DISTRESS [None]
  - TARDIVE DYSKINESIA [None]
  - OESOPHAGITIS [None]
  - DYSKINESIA [None]
  - DYSTONIA [None]
  - ABDOMINAL PAIN UPPER [None]
  - MUSCLE SPASMS [None]
  - MOVEMENT DISORDER [None]
  - DYSPHAGIA [None]
  - HAEMATOCHEZIA [None]
  - GASTRITIS [None]
  - PARKINSONISM [None]
  - HAEMORRHOIDS [None]
  - MEMORY IMPAIRMENT [None]
  - NECK PAIN [None]
  - TREMOR [None]
  - BEZOAR [None]
  - BACK PAIN [None]
  - GASTRITIS EROSIVE [None]
